FAERS Safety Report 18411302 (Version 1)
Quarter: 2020Q4

REPORT INFORMATION
  Report Type: Report from Study
  Country: MX (occurrence: MX)
  Receive Date: 20201021
  Receipt Date: 20201021
  Transmission Date: 20210114
  Serious: Yes (Other)
  Sender: FDA-Public Use
  Company Number: NVSC2020MX280115

PATIENT
  Age: 69 Year
  Sex: Female
  Weight: 109 kg

DRUGS (1)
  1. GALVUS MET [Suspect]
     Active Substance: METFORMIN HYDROCHLORIDE\VILDAGLIPTIN
     Indication: DIABETES MELLITUS
     Dosage: 2 DF, BID (1 IN THE MORNING + 1 AT NIGHT)
     Route: 048

REACTIONS (2)
  - Weight increased [Unknown]
  - Breast cancer [Unknown]

NARRATIVE: CASE EVENT DATE: 20200807
